FAERS Safety Report 9282267 (Version 1)
Quarter: 2013Q2

REPORT INFORMATION
  Report Type: Spontaneous
  Country: US (occurrence: None)
  Receive Date: 20130509
  Receipt Date: 20130509
  Transmission Date: 20140414
  Serious: Yes (Death)
  Sender: FDA-Public Use
  Company Number: None

PATIENT
  Age: 50 Year
  Sex: Male
  Weight: 143.79 kg

DRUGS (1)
  1. ZOLPIDEM TARTRATE [Suspect]
     Indication: SLEEP APNOEA SYNDROME
     Dosage: (1) 10MG TABLET DAILY ORALLY BY TABLET?JAN 4 - FEB 22
     Route: 048

REACTIONS (4)
  - Middle insomnia [None]
  - Gun shot wound [None]
  - Completed suicide [None]
  - Headache [None]
